FAERS Safety Report 13039036 (Version 1)
Quarter: 2016Q4

REPORT INFORMATION
  Report Type: Spontaneous
  Country: DE (occurrence: DE)
  Receive Date: 20161219
  Receipt Date: 20161219
  Transmission Date: 20170207
  Serious: Yes (Other)
  Sender: FDA-Public Use
  Company Number: DE-ROCHE-1868180

PATIENT
  Age: 51 Year
  Sex: Female
  Weight: 83 kg

DRUGS (12)
  1. PERJETA [Suspect]
     Active Substance: PERTUZUMAB
     Indication: BREAST CANCER
     Dosage: FIRST ADMINISTRATION
     Route: 042
     Dates: start: 20160530, end: 20160530
  2. DEXAMETHASON [Concomitant]
     Active Substance: DEXAMETHASONE
     Dosage: WITH CHEMOTHERAPY
     Route: 042
  3. MESNA. [Concomitant]
     Active Substance: MESNA
     Dosage: WITH CHEMOTHERAPY
     Route: 042
  4. PERJETA [Suspect]
     Active Substance: PERTUZUMAB
     Dosage: 2ND TO 4TH ADMINISTRATION
     Route: 042
     Dates: start: 201606, end: 20160801
  5. EPIRUBICIN [Suspect]
     Active Substance: EPIRUBICIN
     Indication: BREAST CANCER
     Dosage: 4 ADMINISTRATIONS
     Route: 042
     Dates: start: 20160307, end: 20160509
  6. GRANISETRON [Concomitant]
     Active Substance: GRANISETRON
     Dosage: WITH CHEMOTHERAPY
     Route: 042
  7. TAXOL [Suspect]
     Active Substance: PACLITAXEL
     Indication: BREAST CANCER
     Dosage: 12 ADMINISTRATIONS
     Route: 042
     Dates: start: 20160530, end: 20160815
  8. DIMETINDENE [Concomitant]
     Active Substance: DIMETHINDENE
     Dosage: WITH TAXOL
     Route: 042
  9. HERCEPTIN [Suspect]
     Active Substance: TRASTUZUMAB
     Indication: BREAST CANCER
     Route: 058
     Dates: start: 20160307, end: 20160822
  10. EMEND [Concomitant]
     Active Substance: APREPITANT
     Dosage: WITH CHEMOTHERAPY
     Route: 048
  11. MESNA. [Concomitant]
     Active Substance: MESNA
     Dosage: WITH CHEMOTHERAPY
     Route: 048
  12. CYCLOPHOSPHAMID [Concomitant]
     Active Substance: CYCLOPHOSPHAMIDE
     Dosage: WITH CHEMOTHERAPY
     Route: 042
     Dates: start: 20160307, end: 20160509

REACTIONS (2)
  - Cardiomyopathy [Unknown]
  - Ejection fraction decreased [Not Recovered/Not Resolved]

NARRATIVE: CASE EVENT DATE: 20160829
